FAERS Safety Report 9726040 (Version 1)
Quarter: 2013Q4

REPORT INFORMATION
  Report Type: Spontaneous
  Country: US (occurrence: US)
  Receive Date: 20131203
  Receipt Date: 20131203
  Transmission Date: 20140711
  Serious: Yes (Other)
  Sender: FDA-Public Use
  Company Number: US-BAYER-2013-145097

PATIENT
  Age: 71 Year
  Sex: Female
  Weight: 65.76 kg

DRUGS (2)
  1. ALEVE CAPLET [Suspect]
     Indication: ARTHRITIS
     Dosage: 1 DF, QD
     Route: 048
     Dates: start: 201310
  2. TOPROL-XL [Concomitant]

REACTIONS (2)
  - Haematochezia [Not Recovered/Not Resolved]
  - Incorrect drug administration duration [None]
